FAERS Safety Report 16582947 (Version 2)
Quarter: 2019Q3

REPORT INFORMATION
  Report Type: Spontaneous
  Country: PL (occurrence: PL)
  Receive Date: 20190717
  Receipt Date: 20190917
  Transmission Date: 20191004
  Serious: Yes (Death, Hospitalization)
  Sender: FDA-Public Use
  Company Number: PL-ACTELION-A-CH2019-193033

PATIENT
  Sex: Female
  Weight: 55 kg

DRUGS (8)
  1. OPSUMIT [Suspect]
     Active Substance: MACITENTAN
     Indication: PULMONARY ARTERIAL HYPERTENSION
     Dosage: 10 MG, QD
     Route: 048
     Dates: start: 20190313, end: 20190327
  2. AVAMINA [Concomitant]
     Indication: DIABETES MELLITUS
     Dosage: 1000 MG, TID
     Dates: end: 20190616
  3. FUROSEMID [Concomitant]
     Active Substance: FUROSEMIDE
     Indication: HYPERTENSION
     Dosage: 120 MG, TID
     Dates: end: 20190616
  4. OPSUMIT [Suspect]
     Active Substance: MACITENTAN
     Dosage: 10 MG, QD
     Route: 048
     Dates: start: 20190513, end: 20190616
  5. REMODULIN [Suspect]
     Active Substance: TREPROSTINIL
     Indication: PULMONARY HYPERTENSION
     Dosage: 0.32 MG/HR, QD
     Route: 048
     Dates: start: 20181105, end: 20190616
  6. REVATIO [Concomitant]
     Active Substance: SILDENAFIL CITRATE
     Indication: PULMONARY HYPERTENSION
     Dosage: 20 MG, TID
     Dates: start: 20180718, end: 20190616
  7. BISOCARD [Concomitant]
     Active Substance: BISOPROLOL
     Indication: CARDIAC FAILURE
     Dosage: 1.25 MG, BID
     Dates: start: 201805, end: 20190616
  8. NONPRES [Concomitant]
     Indication: HYPERTENSION
     Dosage: 50 MG, QD
     Dates: end: 20190616

REACTIONS (9)
  - Acute right ventricular failure [Fatal]
  - Weight increased [Fatal]
  - Hepatic failure [Fatal]
  - Swelling [Fatal]
  - Acute kidney injury [Fatal]
  - Dizziness [Fatal]
  - Malaise [Fatal]
  - Dyspnoea [Fatal]
  - Ascites [Fatal]
